FAERS Safety Report 10575575 (Version 1)
Quarter: 2014Q4

REPORT INFORMATION
  Report Type: Spontaneous
  Country: US (occurrence: US)
  Receive Date: 20141111
  Receipt Date: 20141111
  Transmission Date: 20150529
  Serious: No
  Sender: FDA-Public Use
  Company Number: US-PFIZER INC-2014304625

PATIENT
  Age: 34 Year
  Sex: Female

DRUGS (2)
  1. LEVOXYL [Suspect]
     Active Substance: LEVOTHYROXINE SODIUM
     Dosage: 175 MCG 7 DAYS A WEEK, PLUS 87.5 MCG (HALF A PILL) ONCE A WEEK
  2. LEVOXYL [Suspect]
     Active Substance: LEVOTHYROXINE SODIUM
     Indication: HYPOTHYROIDISM
     Dosage: 175 ?G, 1X/DAY

REACTIONS (3)
  - Pruritus [Unknown]
  - Quality of life decreased [Unknown]
  - Drug ineffective [Unknown]
